FAERS Safety Report 10875155 (Version 8)
Quarter: 2016Q4

REPORT INFORMATION
  Report Type: Spontaneous
  Country: US (occurrence: US)
  Receive Date: 20150227
  Receipt Date: 20161014
  Transmission Date: 20170206
  Serious: Yes (Hospitalization, Other)
  Sender: FDA-Public Use
  Company Number: US-PFIZER INC-2015074161

PATIENT
  Age: 49 Year
  Sex: Male
  Weight: 97.52 kg

DRUGS (13)
  1. EFFEXOR XR [Suspect]
     Active Substance: VENLAFAXINE HYDROCHLORIDE
     Indication: BIPOLAR DISORDER
     Dosage: 75 MG, 1X/DAY
     Route: 048
     Dates: start: 201209
  2. METOPROLOL TARTRATE. [Concomitant]
     Active Substance: METOPROLOL TARTRATE
     Indication: HYPERTENSION
     Dosage: 25 MG, 1X/DAY
     Route: 048
  3. DOXAZOSIN MESILATE [Suspect]
     Active Substance: DOXAZOSIN MESYLATE
     Indication: NEPHROLITHIASIS
     Dosage: 4 MG, 1X/DAY
     Dates: start: 20130313, end: 201304
  4. EFFEXOR XR [Suspect]
     Active Substance: VENLAFAXINE HYDROCHLORIDE
     Dosage: UNK (TOOK QUARTER OF 75 MG CAPSULE)
     Route: 048
  5. PROTONIX [Suspect]
     Active Substance: PANTOPRAZOLE SODIUM
     Indication: ABDOMINAL DISCOMFORT
     Dosage: 40 MG, 1X/DAY
     Dates: start: 201108
  6. EFFEXOR XR [Suspect]
     Active Substance: VENLAFAXINE HYDROCHLORIDE
     Indication: DEPRESSION
     Dosage: 37.5 MG, 1X/DAY
     Route: 048
     Dates: start: 2014
  7. EFFEXOR XR [Suspect]
     Active Substance: VENLAFAXINE HYDROCHLORIDE
     Dosage: 150 MG, 1X/DAY
     Route: 048
  8. LISINOPRIL. [Suspect]
     Active Substance: LISINOPRIL
     Indication: HYPERTENSION
     Dosage: 10 MG, 1X/DAY
     Dates: start: 201210
  9. LISINOPRIL. [Suspect]
     Active Substance: LISINOPRIL
     Dosage: 25 MG, 1X/DAY
  10. TRAMADOL. [Suspect]
     Active Substance: TRAMADOL
     Indication: BACK PAIN
     Dosage: 50 MG, AS NEEDED (ONCE A DAY)
     Dates: start: 20141203
  11. EFFEXOR XR [Suspect]
     Active Substance: VENLAFAXINE HYDROCHLORIDE
     Dosage: 75 MG, 1X/DAY
  12. ASPIRIN. [Concomitant]
     Active Substance: ASPIRIN
     Indication: ANTICOAGULANT THERAPY
     Dosage: 81 MG, 1X/DAY
  13. EFFEXOR XR [Suspect]
     Active Substance: VENLAFAXINE HYDROCHLORIDE
     Dosage: 75 MG, UNK
     Route: 048

REACTIONS (28)
  - Peripheral coldness [Not Recovered/Not Resolved]
  - Somnolence [Not Recovered/Not Resolved]
  - Diarrhoea [Not Recovered/Not Resolved]
  - Myocardial infarction [Unknown]
  - Abdominal discomfort [Unknown]
  - Hypertension [Unknown]
  - Hypersomnia [Recovered/Resolved]
  - Pain [Recovered/Resolved]
  - Drug effect decreased [Recovered/Resolved]
  - Intentional product misuse [Unknown]
  - Mental disorder [Recovered/Resolved]
  - Vomiting [Unknown]
  - Depression [Recovered/Resolved]
  - Hypoaesthesia [Not Recovered/Not Resolved]
  - Nephrolithiasis [Unknown]
  - Condition aggravated [Unknown]
  - Decreased appetite [Unknown]
  - Burning sensation [Recovered/Resolved]
  - Visual impairment [Unknown]
  - Feeling abnormal [Unknown]
  - Paraesthesia [Not Recovered/Not Resolved]
  - Weight decreased [Unknown]
  - Muscle disorder [Not Recovered/Not Resolved]
  - Liver disorder [Unknown]
  - Asthenia [Recovered/Resolved]
  - Headache [Unknown]
  - Dyspnoea [Unknown]
  - Vision blurred [Unknown]

NARRATIVE: CASE EVENT DATE: 2012
